FAERS Safety Report 21095600 (Version 1)
Quarter: 2022Q3

REPORT INFORMATION
  Report Type: Report from Study
  Country: US (occurrence: None)
  Receive Date: 20220718
  Receipt Date: 20220718
  Transmission Date: 20221026
  Serious: Yes (Hospitalization, Other)
  Sender: FDA-Public Use
  Company Number: US-ROCHE-3048219

PATIENT
  Age: 44 Year
  Sex: Female
  Weight: 77.7 kg

DRUGS (4)
  1. ATEZOLIZUMAB [Suspect]
     Active Substance: ATEZOLIZUMAB
     Indication: Adenocarcinoma of colon
     Dosage: LAST ADMINISTERED DATE: 31/JAN/2022
     Route: 041
     Dates: start: 20210927, end: 20220131
  2. FLUOROURACIL [Suspect]
     Active Substance: FLUOROURACIL
     Indication: Adenocarcinoma of colon
     Dosage: LAST ADMINISTERED DATE: 31-JAN-2022?ON DAY 1, THEN CONTINUOUSLY OVER 46 HOURS ON DAYS 1-3
     Route: 040
     Dates: start: 20210927, end: 20220202
  3. LEUCOVORIN CALCIUM [Suspect]
     Active Substance: LEUCOVORIN CALCIUM
     Indication: Adenocarcinoma of colon
     Dosage: LAST ADMINISTERED DATE: 31/JAN/2022?OVER 2 HOURS ON DAY 1
     Route: 042
     Dates: start: 20210927, end: 20220131
  4. OXALIPLATIN [Suspect]
     Active Substance: OXALIPLATIN
     Indication: Adenocarcinoma of colon
     Dosage: LAST ADMINISTERED DATE: 25/OCT/2021?OVER 2 HOURS ON DAY 1
     Route: 042
     Dates: start: 20210927, end: 20211025

REACTIONS (2)
  - Skin infection [Recovering/Resolving]
  - Device related infection [Unknown]

NARRATIVE: CASE EVENT DATE: 20220131
